FAERS Safety Report 8246568-9 (Version None)
Quarter: 2012Q1

REPORT INFORMATION
  Report Type: 
  Country: None (occurrence: None)
  Receive Date: 20120330
  Receipt Date: 20120326
  Transmission Date: 20120608
  Serious: Yes (Other)
  Sender: FDA-Public Use
  Company Number: PHHY2012ZA026930

PATIENT
  Sex: Female

DRUGS (2)
  1. ZOLEDRONOC ACID [Suspect]
     Dosage: (5MG/100 ML)UNK
     Route: 042
     Dates: start: 20100401
  2. ZOLEDRONOC ACID [Suspect]
     Dosage: (5MG/100 ML)UNK
     Route: 042
     Dates: start: 20110401

REACTIONS (1)
  - INGUINAL HERNIA [None]
